FAERS Safety Report 4659868-6 (Version None)
Quarter: 2005Q2

REPORT INFORMATION
  Report Type: 
  Country: None (occurrence: None)
  Receive Date: 20050510
  Receipt Date: 20041208
  Transmission Date: 20051028
  Serious: Yes (Other)
  Sender: FDA-Public Use
  Company Number: PAR_0026_2005

PATIENT
  Sex: Male

DRUGS (2)
  1. ISOPTIN RR PLUS [Suspect]
  2. ISOPTIN RR PLUS [Suspect]

REACTIONS (2)
  - LYMPHOEDEMA [None]
  - OEDEMA PERIPHERAL [None]
